FAERS Safety Report 5450316-5 (Version None)
Quarter: 2007Q3

REPORT INFORMATION
  Report Type: 
  Country: None (occurrence: None)
  Receive Date: 20070912
  Receipt Date: 20070907
  Transmission Date: 20080115
  Serious: Yes (Disabling, Other)
  Sender: FDA-Public Use
  Company Number: US-ASTRAZENECA-2007UW16975

PATIENT
  Age: 53 Year
  Sex: Female
  Weight: 48.6 kg

DRUGS (6)
  1. ARIMIDEX [Suspect]
     Indication: BREAST CANCER
     Dates: start: 20061001
  2. AROMASIN [Suspect]
  3. METHOTREXATE [Suspect]
     Route: 042
  4. CELEBREX [Concomitant]
  5. XANAX [Concomitant]
  6. CELEXA [Concomitant]

REACTIONS (3)
  - ARTHROPATHY [None]
  - DRUG INTERACTION [None]
  - RHEUMATOID ARTHRITIS [None]
